FAERS Safety Report 7778939 (Version 6)
Quarter: 2013Q1

REPORT INFORMATION
  Report Type: Report from Study
  Country: JP (occurrence: JP)
  Receive Date: 20110128
  Receipt Date: 20130127
  Transmission Date: 20140127
  Serious: Yes (Death)
  Sender: FDA-Public Use
  Company Number: JP-AMGEN-JPNCT2011005315

PATIENT
  Age: 18 Year
  Sex: Male
  Weight: 48 kg

DRUGS (9)
  1. PANITUMUMAB [Suspect]
     Indication: COLORECTAL CANCER
     Dosage: 6 MG/KG, Q2WK
     Route: 041
     Dates: start: 20100924, end: 20101203
  2. ANTIHISTAMINES [Concomitant]
     Indication: PROPHYLAXIS
     Dosage: UNK
     Route: 065
  3. CORTICOSTEROIDS [Concomitant]
     Indication: PROPHYLAXIS
     Dosage: UNK
     Route: 065
  4. IRINOTECAN HYDROCHLORIDE [Concomitant]
     Indication: COLORECTAL CANCER
     Dosage: 135 MG/M2, Q2WK
     Route: 041
     Dates: start: 20100924, end: 20101203
  5. FLUOROURACIL [Concomitant]
     Indication: COLORECTAL CANCER
     Dosage: 338 MG/M2, Q2WK
     Route: 040
     Dates: start: 20100924, end: 20101203
  6. FLUOROURACIL [Concomitant]
     Dosage: 2027 MG/M2, Q2WK
     Route: 041
     Dates: start: 20100924, end: 20101203
  7. CALCIUM LEVOFOLINATE [Concomitant]
     Indication: COLORECTAL CANCER
     Dosage: 170 MG/M2, UNK
     Route: 041
     Dates: start: 20100924, end: 20101203
  8. HIRUDOID SOFT [Concomitant]
     Dosage: UNK
     Route: 062
  9. MYSER CREAM [Concomitant]
     Dosage: UNK
     Route: 062

REACTIONS (3)
  - Colorectal cancer [Fatal]
  - Blood magnesium decreased [Recovering/Resolving]
  - Paronychia [Recovered/Resolved]
